FAERS Safety Report 11843639 (Version 1)
Quarter: 2015Q4

REPORT INFORMATION
  Report Type: Spontaneous
  Country: US (occurrence: US)
  Receive Date: 20151217
  Receipt Date: 20151217
  Transmission Date: 20160305
  Serious: No
  Sender: FDA-Public Use
  Company Number: US-HOSPIRA-2693761

PATIENT
  Age: 41 Year
  Sex: Female
  Weight: 54.54 kg

DRUGS (4)
  1. HUMIRA [Concomitant]
     Active Substance: ADALIMUMAB
     Indication: ARTHRITIS
     Dosage: NOT REPORTED, INJECTION
     Route: 050
  2. METHOTREXATE [Suspect]
     Active Substance: METHOTREXATE
     Indication: CROHN^S DISEASE
     Dosage: 0.5 ML, INJECTION
     Route: 050
     Dates: start: 201411
  3. METHOTREXATE [Suspect]
     Active Substance: METHOTREXATE
     Indication: ARTHRITIS
     Dosage: 0.5 ML, INJECTION
     Route: 050
     Dates: start: 201411
  4. HUMIRA [Concomitant]
     Active Substance: ADALIMUMAB
     Indication: CROHN^S DISEASE
     Dosage: NOT REPORTED, INJECTION
     Route: 050

REACTIONS (2)
  - No adverse event [None]
  - Expired product administered [Recovered/Resolved]

NARRATIVE: CASE EVENT DATE: 201411
